FAERS Safety Report 8838314 (Version 1)
Quarter: 2012Q4

REPORT INFORMATION
  Report Type: 
  Country: US (occurrence: US)
  Receive Date: 20121012
  Receipt Date: 20121012
  Transmission Date: 20130627
  Serious: Yes (Hospitalization)
  Sender: FDA-Public Use
  Company Number: US-GLAXOSMITHKLINE-A0996470A

PATIENT
  Age: 48 Year
  Sex: Male

DRUGS (2)
  1. VALTREX [Suspect]
     Indication: GENITAL HERPES
     Dosage: 500MG Twice per day
     Route: 048
     Dates: start: 20080304, end: 20100909
  2. SLEEPING MEDICATION [Concomitant]

REACTIONS (7)
  - Cognitive disorder [Not Recovered/Not Resolved]
  - Aspartate aminotransferase increased [Recovering/Resolving]
  - Alanine aminotransferase increased [Recovering/Resolving]
  - Insomnia [Unknown]
  - Psychotic disorder [Unknown]
  - Dissociation [Unknown]
  - Restlessness [Unknown]
